FAERS Safety Report 25036657 (Version 1)
Quarter: 2025Q1

REPORT INFORMATION
  Report Type: Spontaneous
  Country: CN (occurrence: CN)
  Receive Date: 20250304
  Receipt Date: 20250304
  Transmission Date: 20250409
  Serious: Yes (Hospitalization)
  Sender: SANOFI AVENTIS
  Company Number: CN-SA-2025SA061270

PATIENT
  Age: 68 Year
  Sex: Female
  Weight: 56 kg

DRUGS (2)
  1. ELOXATIN [Suspect]
     Active Substance: OXALIPLATIN
     Indication: Colon cancer
     Dosage: 193 MG, QD
     Route: 041
     Dates: start: 20250219, end: 20250219
  2. DEXTROSE [Concomitant]
     Active Substance: DEXTROSE MONOHYDRATE
     Indication: Colon cancer
     Dosage: 500 ML, QD
     Route: 041
     Dates: start: 20250219, end: 20250219

REACTIONS (7)
  - Palpitations [Recovered/Resolved]
  - Heart rate decreased [Recovering/Resolving]
  - Constipation [Recovered/Resolved]
  - Tremor [Recovering/Resolving]
  - Chest discomfort [Recovering/Resolving]
  - Asthenia [Recovering/Resolving]
  - Hypoaesthesia [Recovering/Resolving]

NARRATIVE: CASE EVENT DATE: 20250219
